FAERS Safety Report 4533269-3 (Version None)
Quarter: 2004Q4

REPORT INFORMATION
  Report Type: 
  Country: None (occurrence: None)
  Receive Date: 20041221
  Receipt Date: 20041213
  Transmission Date: 20050328
  Serious: Yes (Hospitalization)
  Sender: FDA-Public Use
  Company Number: DE-BRISTOL-MYERS SQUIBB COMPANY-12798427

PATIENT
  Age: 63 Year
  Sex: Female
  Weight: 78 kg

DRUGS (6)
  1. CYCLOPHOSPHAMIDE [Suspect]
     Indication: BREAST CANCER
     Route: 048
     Dates: start: 20031128, end: 20031211
  2. UROMITEXAN [Suspect]
     Indication: BREAST CANCER
     Route: 048
     Dates: start: 20031128, end: 20031211
  3. EPIRUBICIN [Suspect]
     Indication: BREAST CANCER
     Route: 042
     Dates: start: 20031205, end: 20031205
  4. FLUOROURACIL [Suspect]
     Indication: BREAST CANCER
     Route: 042
     Dates: start: 20031205, end: 20031205
  5. NEUPOGEN [Concomitant]
  6. TAO [Concomitant]

REACTIONS (6)
  - DEEP VEIN THROMBOSIS [None]
  - HAEMOGLOBIN DECREASED [None]
  - INTERNATIONAL NORMALISED RATIO DECREASED [None]
  - PLATELET COUNT DECREASED [None]
  - PROTHROMBIN TIME PROLONGED [None]
  - WHITE BLOOD CELL COUNT DECREASED [None]
